FAERS Safety Report 9639794 (Version 7)
Quarter: 2014Q2

REPORT INFORMATION
  Report Type: Spontaneous
  Country: US (occurrence: US)
  Receive Date: 20131023
  Receipt Date: 20140501
  Transmission Date: 20141212
  Serious: Yes (Hospitalization, Other)
  Sender: FDA-Public Use
  Company Number: US-JNJFOC-20131007940

PATIENT
  Sex: Male
  Weight: 96.16 kg

DRUGS (6)
  1. CHILDREN^S TYLENOL [Suspect]
     Route: 048
  2. CHILDREN^S TYLENOL [Suspect]
     Indication: PRODUCT USED FOR UNKNOWN INDICATION
     Route: 048
     Dates: start: 20111006, end: 20111009
  3. MOTRIN [Suspect]
     Indication: HEADACHE
     Dosage: 2-3 IBUPROFEN
     Route: 065
  4. ALCOHOL [Suspect]
     Indication: PRODUCT USED FOR UNKNOWN INDICATION
     Route: 065
  5. EPHEDRA [Suspect]
     Indication: PRODUCT USED FOR UNKNOWN INDICATION
     Route: 065
  6. ANABOLIC STEROIDS [Suspect]
     Indication: PRODUCT USED FOR UNKNOWN INDICATION
     Route: 065

REACTIONS (14)
  - Coma hepatic [Recovered/Resolved]
  - Septic shock [Recovered/Resolved]
  - Acute hepatic failure [Recovered/Resolved]
  - Respiratory failure [Unknown]
  - Disseminated intravascular coagulation [Recovered/Resolved]
  - Lactic acidosis [Unknown]
  - Atrial fibrillation [Unknown]
  - Hepatorenal syndrome [Unknown]
  - Coagulopathy [Unknown]
  - Chronic hepatic failure [Unknown]
  - Pneumonia aspiration [Unknown]
  - Pancreatitis [Unknown]
  - Leukocytosis [Unknown]
  - Drug-induced liver injury [Unknown]
